FAERS Safety Report 11308397 (Version 3)
Quarter: 2015Q3

REPORT INFORMATION
  Report Type: Spontaneous
  Country: RO (occurrence: RO)
  Receive Date: 20150724
  Receipt Date: 20150928
  Transmission Date: 20151125
  Serious: Yes (Life-Threatening, Hospitalization, Disabling, Other)
  Sender: FDA-Public Use
  Company Number: PHHY2015RO085722

PATIENT
  Age: 59 Year
  Sex: Female
  Weight: 70 kg

DRUGS (2)
  1. TASIGNA [Suspect]
     Active Substance: NILOTINIB
     Indication: CHRONIC MYELOID LEUKAEMIA
     Dosage: 800 MG, QD (2 X 400 MG )
     Route: 048
     Dates: start: 201506, end: 20150719
  2. TASIGNA [Suspect]
     Active Substance: NILOTINIB
     Dosage: UNK
     Route: 048
     Dates: end: 20150820

REACTIONS (6)
  - Thrombocytopenia [Recovering/Resolving]
  - Mucocutaneous haemorrhage [Unknown]
  - Leukopenia [Recovering/Resolving]
  - Anaemia [Recovering/Resolving]
  - Pallor [Unknown]
  - Neutropenia [Unknown]
